FAERS Safety Report 9967819 (Version 1)
Quarter: 2014Q1

REPORT INFORMATION
  Report Type: Report from Study
  Country: US (occurrence: US)
  Receive Date: 20140306
  Receipt Date: 20140306
  Transmission Date: 20141002
  Serious: No
  Sender: FDA-Public Use
  Company Number: US-ABBVIE-13P-163-1141729-00

PATIENT
  Age: 32 Year
  Sex: Female

DRUGS (6)
  1. HUMIRA [Suspect]
     Indication: COLITIS ULCERATIVE
     Dates: start: 20130802
  2. HUMIRA [Suspect]
     Dates: start: 20130816
  3. HUMIRA [Suspect]
     Dates: start: 20130829
  4. OXYCODONE [Concomitant]
     Indication: PAIN
  5. ZOFRAN [Concomitant]
     Indication: NAUSEA
  6. PROTONIX [Concomitant]
     Indication: PRODUCT USED FOR UNKNOWN INDICATION

REACTIONS (2)
  - Abdominal pain [Not Recovered/Not Resolved]
  - Drug ineffective [Unknown]
